FAERS Safety Report 5080953-1 (Version None)
Quarter: 2006Q3

REPORT INFORMATION
  Report Type: 
  Country: None (occurrence: None)
  Receive Date: 20060810
  Receipt Date: 20060728
  Transmission Date: 20061208
  Serious: Yes (Other)
  Sender: FDA-Public Use
  Company Number: DEU-2005-0001854

PATIENT
  Age: 73 Year
  Sex: Male
  Weight: 89 kg

DRUGS (3)
  1. OXYCODONE HCL [Suspect]
     Indication: BACK PAIN
     Dosage: 10 MG, TID, ORAL
     Route: 048
     Dates: start: 20050201
  2. ALLOPURINOL [Concomitant]
  3. ENALAPRIL MALEATE W/HYDROCHLOROTHIAZIDE (HYDROCHLOROTHIAZIDE ENALAPRIL [Concomitant]

REACTIONS (6)
  - ABDOMINAL PAIN [None]
  - CATARACT [None]
  - GLARE [None]
  - MYOPIA [None]
  - PHOTOPHOBIA [None]
  - VISION BLURRED [None]
